FAERS Safety Report 6669216-8 (Version None)
Quarter: 2010Q2

REPORT INFORMATION
  Report Type: 
  Country: None (occurrence: None)
  Receive Date: 20100406
  Receipt Date: 20100331
  Transmission Date: 20101027
  Serious: Yes (Hospitalization)
  Sender: FDA-Public Use
  Company Number: US-ROCHE-690076

PATIENT
  Age: 48 Year
  Sex: Male
  Weight: 98 kg

DRUGS (3)
  1. BEVACIZUMAB [Suspect]
     Indication: GLIOBLASTOMA MULTIFORME
     Route: 065
  2. PLACEBO [Suspect]
     Indication: GLIOBLASTOMA MULTIFORME
     Dosage: THERAPY BLINDED.
     Route: 042
     Dates: start: 20100202, end: 20100223
  3. TEMOZOLOMIDE [Suspect]
     Indication: GLIOBLASTOMA MULTIFORME
     Dosage: TOTAL DOSE ADMINISTERED: 4785 MG. DOSE: 165 MG PER DAY ON DAYS 1-5.
     Route: 048
     Dates: start: 20100202, end: 20100302

REACTIONS (2)
  - CONVULSION [None]
  - HYDROCEPHALUS [None]
